FAERS Safety Report 8069023-8 (Version None)
Quarter: 2011Q4

REPORT INFORMATION
  Report Type: 
  Country: None (occurrence: None)
  Receive Date: 20111221
  Receipt Date: 20101112
  Transmission Date: 20120403
  Serious: Yes (Other)
  Sender: FDA-Public Use
  Company Number: PHHY2010US74085

PATIENT
  Age: 2 Year
  Sex: Female

DRUGS (2)
  1. PENICILLIN (BENZYLPENICILLOIN SODIUM) [Concomitant]
  2. EXJADE [Suspect]
     Indication: IRON OVERLOAD
     Dosage: 375 MG, QD, ORAL
     Route: 048
     Dates: start: 20100608, end: 20101016

REACTIONS (5)
  - ALANINE AMINOTRANSFERASE INCREASED [None]
  - LIVER FUNCTION TEST ABNORMAL [None]
  - RASH [None]
  - ASPARTATE AMINOTRANSFERASE INCREASED [None]
  - ALOPECIA [None]
